FAERS Safety Report 14898100 (Version 5)
Quarter: 2019Q1

REPORT INFORMATION
  Report Type: Report from Study
  Country: CA (occurrence: CA)
  Receive Date: 20180515
  Receipt Date: 20190102
  Transmission Date: 20190417
  Serious: Yes (Death, Hospitalization, Other)
  Sender: FDA-Public Use
  Company Number: CA-OTSUKA-2018_011184

PATIENT
  Age: 69 Year
  Sex: Male
  Weight: 121.1 kg

DRUGS (7)
  1. LOVENOX [Concomitant]
     Active Substance: ENOXAPARIN SODIUM
     Indication: ANTICOAGULANT THERAPY
     Dosage: UNK
     Route: 065
     Dates: start: 20180501, end: 20180601
  2. CEFAZOLIN [Concomitant]
     Active Substance: CEFAZOLIN
     Indication: PNEUMONIA
     Dosage: UNK
     Route: 065
     Dates: start: 20180424
  3. MELPHALAN. [Suspect]
     Active Substance: MELPHALAN
     Indication: STEM CELL TRANSPLANT
     Dosage: 292 MG, ONCE
     Route: 042
     Dates: start: 20140621, end: 20140621
  4. AMOXICILLIN. [Concomitant]
     Active Substance: AMOXICILLIN
     Indication: BACTERIAL INFECTION
     Dosage: UNK
     Route: 065
     Dates: start: 20180509, end: 20180816
  5. BUSULFAN. [Suspect]
     Active Substance: BUSULFAN
     Indication: STEM CELL TRANSPLANT
     Dosage: 3.2 MG/KG, QD  (282 MG)
     Route: 042
     Dates: start: 20140618, end: 20140620
  6. LENALIDOMIDE [Suspect]
     Active Substance: LENALIDOMIDE
     Indication: STEM CELL TRANSPLANT
     Dosage: 10 MG, QD
     Route: 048
     Dates: start: 20141003, end: 20180423
  7. CLAVULANIC ACID [Concomitant]
     Active Substance: CLAVULANIC ACID
     Indication: BACTERIAL INFECTION
     Dosage: UNK
     Route: 065
     Dates: start: 20180509, end: 20180516

REACTIONS (4)
  - Pulmonary embolism [Recovered/Resolved]
  - Lung infection [Recovered/Resolved]
  - Pneumonia [Recovered/Resolved]
  - Adenosquamous cell lung cancer [Fatal]

NARRATIVE: CASE EVENT DATE: 20180423
